FAERS Safety Report 18728835 (Version 2)
Quarter: 2021Q1

REPORT INFORMATION
  Report Type: Spontaneous
  Country: US (occurrence: US)
  Receive Date: 20210112
  Receipt Date: 20210311
  Transmission Date: 20210419
  Serious: No
  Sender: FDA-Public Use
  Company Number: US-ASTRAZENECA-2021A001870

PATIENT
  Sex: Female
  Weight: 77.6 kg

DRUGS (3)
  1. MUCINEX [Concomitant]
     Active Substance: GUAIFENESIN
  2. SYMBICORT [Suspect]
     Active Substance: BUDESONIDE\FORMOTEROL FUMARATE DIHYDRATE
     Indication: ASTHMA
     Dosage: 160/4.5MCG, 120 DOSES, 2 PUFFS TWICE DAILY
     Route: 055
  3. SYMBICORT [Suspect]
     Active Substance: BUDESONIDE\FORMOTEROL FUMARATE DIHYDRATE
     Indication: CHRONIC OBSTRUCTIVE PULMONARY DISEASE
     Dosage: 160/4.5MCG, 120 DOSES, 2 PUFFS TWICE DAILY
     Route: 055

REACTIONS (7)
  - Product packaging quantity issue [Unknown]
  - Productive cough [Unknown]
  - Product taste abnormal [Unknown]
  - Device mechanical issue [Unknown]
  - Illness [Unknown]
  - Infection [Unknown]
  - Intentional device misuse [Unknown]
